FAERS Safety Report 21706468 (Version 6)
Quarter: 2023Q4

REPORT INFORMATION
  Report Type: Spontaneous
  Country: DE (occurrence: DE)
  Receive Date: 20221209
  Receipt Date: 20231009
  Transmission Date: 20240109
  Serious: Yes (Congenital Anomaly, Other)
  Sender: FDA-Public Use
  Company Number: None

PATIENT

DRUGS (2)
  1. TERIFLUNOMIDE [Suspect]
     Active Substance: TERIFLUNOMIDE
     Indication: Multiple sclerosis
     Dosage: UNK
     Route: 064
  2. FINGOLIMOD [Suspect]
     Active Substance: FINGOLIMOD
     Indication: Product used for unknown indication
     Dosage: MATERNAL DOSE AT EXPOSURE: UNK
     Route: 064

REACTIONS (8)
  - Pyloric stenosis [Unknown]
  - Gastrointestinal malformation [Unknown]
  - Heart disease congenital [Unknown]
  - Microcephaly [Unknown]
  - Congenital cerebral cyst [Unknown]
  - Talipes [Unknown]
  - Atrial septal defect [Unknown]
  - Foetal exposure during pregnancy [Unknown]
